FAERS Safety Report 17874412 (Version 1)
Quarter: 2020Q2

REPORT INFORMATION
  Report Type: Spontaneous
  Country: FR (occurrence: FR)
  Receive Date: 20200609
  Receipt Date: 20200609
  Transmission Date: 20200714
  Serious: Yes (Hospitalization)
  Sender: FDA-Public Use
  Company Number: FR-ACCORD-184461

PATIENT
  Age: 66 Year
  Sex: Female
  Weight: 40 kg

DRUGS (19)
  1. ZYMAD [Concomitant]
     Active Substance: CHOLECALCIFEROL
  2. ONDANSETRON [Concomitant]
     Active Substance: ONDANSETRON
  3. PACLITAXEL/PACLITAXEL LIPOSOME [Suspect]
     Active Substance: PACLITAXEL
     Indication: SQUAMOUS CELL CARCINOMA OF THE CERVIX
     Route: 042
     Dates: start: 201912, end: 20200421
  4. AVASTIN [Suspect]
     Active Substance: BEVACIZUMAB
     Indication: SQUAMOUS CELL CARCINOMA OF THE CERVIX
     Dosage: STRENGTH: 25 MG / ML
     Route: 042
     Dates: start: 20200406, end: 20200421
  5. ZINC GRANIONS [Concomitant]
     Dosage: STRENGTH: 15 MG / 2 ML, ORAL SOLUTION IN AMPOULE
  6. ACTISKENAN [Concomitant]
     Active Substance: MORPHINE SULFATE
  7. ACUPAN [Concomitant]
     Active Substance: NEFOPAM HYDROCHLORIDE
  8. LACTULOSE. [Concomitant]
     Active Substance: LACTULOSE
  9. MAG 2 [Concomitant]
     Active Substance: MAGNESIUM
  10. CARBOPLATIN ACCORD [Suspect]
     Active Substance: CARBOPLATIN
     Indication: SQUAMOUS CELL CARCINOMA OF THE CERVIX
     Dosage: STRENGTH: 10 MG / ML
     Route: 042
     Dates: start: 20200203, end: 20200421
  11. DEBRIDAT [Concomitant]
     Active Substance: TRIMEBUTINE MALEATE
  12. EMLA [Concomitant]
     Active Substance: LIDOCAINE\PRILOCAINE
  13. DIFFU K [Concomitant]
     Active Substance: POTASSIUM CHLORIDE
  14. EMEND [Concomitant]
     Active Substance: APREPITANT
  15. NOCTAMIDE [Concomitant]
     Active Substance: LORMETAZEPAM
  16. DUROGESIC [Concomitant]
     Active Substance: FENTANYL
  17. DUPHALAC [Concomitant]
     Active Substance: LACTULOSE
  18. PRIMPERAN [Concomitant]
     Active Substance: METOCLOPRAMIDE HYDROCHLORIDE
  19. SERESTA [Concomitant]
     Active Substance: OXAZEPAM

REACTIONS (1)
  - Posterior reversible encephalopathy syndrome [Recovered/Resolved]

NARRATIVE: CASE EVENT DATE: 20200511
